FAERS Safety Report 7311718-5 (Version None)
Quarter: 2011Q1

REPORT INFORMATION
  Report Type: 
  Country: None (occurrence: None)
  Receive Date: 20110215
  Receipt Date: 20110215
  Transmission Date: 20110831
  Serious: Yes (Hospitalization, Other)
  Sender: FDA-Public Use
  Company Number: None

PATIENT
  Sex: Female
  Weight: 47.6277 kg

DRUGS (2)
  1. CLARITHROMYCIN [Suspect]
     Indication: PULMONARY CONGESTION
     Dosage: 500MG 2 EA DAY (TOOK ONLY 3 PILLS)
     Dates: start: 20110128
  2. CLARITHROMYCIN [Suspect]
     Indication: PULMONARY CONGESTION
     Dosage: 500MG 2 EA DAY (TOOK ONLY 3 PILLS)
     Dates: start: 20110129

REACTIONS (8)
  - DIARRHOEA [None]
  - DYSGEUSIA [None]
  - MOOD ALTERED [None]
  - YELLOW SKIN [None]
  - SYNCOPE [None]
  - DEAFNESS [None]
  - HEART RATE IRREGULAR [None]
  - ABDOMINAL PAIN [None]
